FAERS Safety Report 5723326-8 (Version None)
Quarter: 2008Q2

REPORT INFORMATION
  Report Type: 
  Country: None (occurrence: None)
  Receive Date: 20080430
  Receipt Date: 20080421
  Transmission Date: 20081010
  Serious: Yes (Hospitalization)
  Sender: FDA-Public Use
  Company Number: PHHO2008FR03247

PATIENT
  Age: 79 Year
  Sex: Female
  Weight: 40 kg

DRUGS (4)
  1. NILOTINIB VS IMATINIB [Suspect]
     Indication: GASTROINTESTINAL STROMAL TUMOUR
     Dosage: 400 MG, BID
     Route: 048
     Dates: start: 20070115, end: 20080123
  2. ASPIRIN [Concomitant]
  3. CORDARONE [Concomitant]
  4. TPN [Concomitant]
     Indication: WEIGHT DECREASED

REACTIONS (7)
  - CARDIAC PACEMAKER INSERTION [None]
  - DYSPNOEA [None]
  - OEDEMA PERIPHERAL [None]
  - SINOATRIAL BLOCK [None]
  - SINUS ARREST [None]
  - SINUS BRADYCARDIA [None]
  - SUPRAVENTRICULAR EXTRASYSTOLES [None]
